FAERS Safety Report 9993406 (Version 1)
Quarter: 2014Q1

REPORT INFORMATION
  Report Type: Spontaneous
  Country: US (occurrence: US)
  Receive Date: 20140310
  Receipt Date: 20140310
  Transmission Date: 20141002
  Serious: Yes (Other)
  Sender: FDA-Public Use
  Company Number: US-PFIZER INC-2014068916

PATIENT
  Sex: Female

DRUGS (1)
  1. LYRICA [Suspect]
     Indication: THORACIC OUTLET SYNDROME
     Dosage: 300 MG, 3X/DAY

REACTIONS (2)
  - Off label use [Unknown]
  - Clonic convulsion [Unknown]
